FAERS Safety Report 7179425-X (Version None)
Quarter: 2010Q4

REPORT INFORMATION
  Report Type: 
  Country: None (occurrence: None)
  Receive Date: 20101221
  Receipt Date: 20101210
  Transmission Date: 20110411
  Serious: Yes (Hospitalization, Other)
  Sender: FDA-Public Use
  Company Number: JP-PFIZER INC-2010163141

PATIENT
  Age: 76 Year
  Sex: Male
  Weight: 37 kg

DRUGS (12)
  1. LYRICA [Suspect]
     Indication: POST HERPETIC NEURALGIA
     Dosage: 75 MG, 1X/DAY
     Route: 048
     Dates: start: 20101115, end: 20101117
  2. LYRICA [Suspect]
     Dosage: 75 MG, 2X/DAY
     Route: 048
     Dates: start: 20101118, end: 20101125
  3. LYRICA [Suspect]
     Dosage: 75 MG, 1X/DAY
     Route: 048
     Dates: start: 20101126, end: 20101130
  4. ALOSENN [Concomitant]
     Route: 048
  5. LANSOPRAZOLE [Concomitant]
     Dosage: 15 MG, A DAY
     Route: 048
  6. ASPIRIN [Concomitant]
     Dosage: 100 MG, A DAY
     Route: 048
  7. BAKTAR [Concomitant]
     Route: 048
  8. PREDNISOLONE [Concomitant]
     Route: 048
  9. URSO 250 [Concomitant]
     Dosage: 100 MG, A DAY
     Route: 048
  10. TEPRENONE [Concomitant]
     Route: 048
  11. VOLTAREN [Concomitant]
     Dosage: 25 MG, A DAY
     Route: 048
  12. VIDARABINE [Concomitant]
     Route: 062

REACTIONS (4)
  - DELUSION [None]
  - DEPRESSED LEVEL OF CONSCIOUSNESS [None]
  - HALLUCINATION [None]
  - HALLUCINATION, AUDITORY [None]
